FAERS Safety Report 22390924 (Version 1)
Quarter: 2023Q2

REPORT INFORMATION
  Report Type: Spontaneous
  Country: ES (occurrence: ES)
  Receive Date: 20230601
  Receipt Date: 20230601
  Transmission Date: 20230722
  Serious: Yes (Hospitalization)
  Sender: FDA-Public Use
  Company Number: None

PATIENT
  Age: 88 Year
  Sex: Male

DRUGS (10)
  1. DOXAZOSIN [Suspect]
     Active Substance: DOXAZOSIN MESYLATE
     Indication: Hypertension
     Dosage: 8.0 MG C/24 H, DOXAZOSINA (2387A)
     Route: 065
     Dates: start: 20150420, end: 20221128
  2. HYDROCHLOROTHIAZIDE\OLMESARTAN MEDOXOMIL [Suspect]
     Active Substance: HYDROCHLOROTHIAZIDE\OLMESARTAN MEDOXOMIL
     Indication: Hypertension
     Dosage: 1.0 COMP C/24 H
     Route: 065
     Dates: start: 20221105, end: 20221128
  3. PARACETAMOL CINFA [Concomitant]
     Indication: Spinal osteoarthritis
     Dosage: 1.0 G D-DECE, EFG TABLETS, 40 TABLETS
     Route: 065
     Dates: start: 20130618
  4. CALCIUM CARBONATE\CHOLECALCIFEROL [Concomitant]
     Active Substance: CALCIUM CARBONATE\CHOLECALCIFEROL
     Indication: Calcium metabolism disorder
     Dosage: 1.0 COMP DE, FORM STRENGTH : 600 MG/2000 IU, 30 TABLETS
     Dates: start: 20220427
  5. GLYCOPYRRONIUM\INDACATEROL [Concomitant]
     Active Substance: GLYCOPYRRONIUM\INDACATEROL
     Indication: Bronchitis chronic
     Dosage: 1.0 CAPS C/24 H, FORM STRENGTH : 85MCG/43MCG, CONTAINER 30 CAPSULES + 1 INHALER
     Route: 065
     Dates: start: 20150303
  6. DIAZEPAM [Concomitant]
     Active Substance: DIAZEPAM
     Indication: Anxiety
     Dosage: 2.5 MG C/12 H, 40 TABLETS
     Route: 065
     Dates: start: 20211221
  7. EDOXABAN TOSYLATE [Concomitant]
     Active Substance: EDOXABAN TOSYLATE
     Indication: Atrial fibrillation
     Dosage: 60.0 MG DE, 28 TABLETS
     Route: 065
     Dates: start: 20221111
  8. HERBALS\SAW PALMETTO [Concomitant]
     Active Substance: HERBALS\SAW PALMETTO
     Indication: Benign prostatic hyperplasia
     Dosage: 160.0 MG DECE, 60 CAPSULES
     Route: 065
     Dates: start: 20100723
  9. OMEPRAZOLE MAGNESIUM [Concomitant]
     Active Substance: OMEPRAZOLE MAGNESIUM
     Indication: Type 2 diabetes mellitus
     Dosage: 20.0 MG A-DE, EFG, 56 CAPSULES
     Route: 065
     Dates: start: 20160429
  10. DUTASTERIDE\TAMSULOSIN [Concomitant]
     Active Substance: DUTASTERIDE\TAMSULOSIN
     Indication: Benign prostatic hyperplasia
     Dosage: 1.0 CAPS CE, FORM STRENGTH : 0.5 MG/0.4 MG, 30 CAPSULES
     Route: 065
     Dates: start: 20150701

REACTIONS (1)
  - Syncope [Recovered/Resolved]

NARRATIVE: CASE EVENT DATE: 20221124
